FAERS Safety Report 24838347 (Version 1)
Quarter: 2025Q1

REPORT INFORMATION
  Report Type: Report from Study
  Country: US (occurrence: US)
  Receive Date: 20250113
  Receipt Date: 20250113
  Transmission Date: 20250409
  Serious: Yes (Death, Other)
  Sender: GILEAD
  Company Number: US-GILEAD-2025-0699801

PATIENT
  Age: 67 Year
  Sex: Male

DRUGS (1)
  1. SOFOSBUVIR\VELPATASVIR [Suspect]
     Active Substance: SOFOSBUVIR\VELPATASVIR
     Indication: Hepatitis C
     Dosage: 1 DOSAGE FORM, QD (TAKE 1 TABLET BY MOUTH ONCE DAILY)
     Route: 048
     Dates: start: 20240912, end: 20241216

REACTIONS (1)
  - Death [Fatal]

NARRATIVE: CASE EVENT DATE: 20241226
